FAERS Safety Report 4389711-4 (Version None)
Quarter: 2004Q2

REPORT INFORMATION
  Report Type: 
  Country: None (occurrence: None)
  Receive Date: 20040629
  Receipt Date: 20030915
  Transmission Date: 20050107
  Serious: Yes (Other)
  Sender: FDA-Public Use
  Company Number: US-JNJFOC-20030803624

PATIENT
  Age: 41 Year
  Sex: Male
  Weight: 69.8539 kg

DRUGS (9)
  1. DURAGESIC [Suspect]
     Indication: PAIN
     Dosage: 100 UG/HR, 1 IN 72 HOUR, TRANSDERMAL
     Route: 062
     Dates: start: 20010201
  2. DITROPAN XL [Suspect]
     Indication: BLADDER SPASM
     Dosage: 10 MG ORAL
     Route: 048
  3. VICODIN [Suspect]
     Indication: PAIN
     Dosage: ONCE TO TWICE A DAY AS NEEDED
  4. PROZAC [Concomitant]
  5. XANAX [Concomitant]
  6. SOMA [Concomitant]
  7. PEPSID(FAMOTIDINE) [Concomitant]
  8. TRAZADONE (TRAZODONE) [Concomitant]
  9. BACLOFEN [Concomitant]

REACTIONS (3)
  - DRUG WITHDRAWAL SYNDROME [None]
  - HYPERTENSION [None]
  - NERVOUS SYSTEM DISORDER [None]
